FAERS Safety Report 24257767 (Version 1)
Quarter: 2024Q3

REPORT INFORMATION
  Report Type: Report from Study
  Country: CA (occurrence: CA)
  Receive Date: 20240828
  Receipt Date: 20240828
  Transmission Date: 20241017
  Serious: Yes (Other)
  Sender: TAKEDA
  Company Number: CA-TAKEDA-2024TUS085647

PATIENT
  Sex: Female

DRUGS (4)
  1. VEDOLIZUMAB [Suspect]
     Active Substance: VEDOLIZUMAB
     Indication: Colitis ulcerative
     Dosage: 300 MILLIGRAM
     Route: 042
     Dates: start: 20240322
  2. ENTOCORT [Concomitant]
     Active Substance: BUDESONIDE
     Dosage: UNK
     Dates: start: 202306
  3. Salofalk [Concomitant]
     Dosage: UNK
     Dates: start: 2019
  4. DIENOGEST [Concomitant]
     Active Substance: DIENOGEST
     Dosage: 2 MILLIGRAM
     Route: 048

REACTIONS (2)
  - Joint swelling [Unknown]
  - Arthralgia [Unknown]
